FAERS Safety Report 22127597 (Version 1)
Quarter: 2023Q1

REPORT INFORMATION
  Report Type: Report from Study
  Country: CN (occurrence: CN)
  Receive Date: 20230323
  Receipt Date: 20230323
  Transmission Date: 20230417
  Serious: Yes (Death, Other)
  Sender: FDA-Public Use
  Company Number: CN-SNT-000363

PATIENT
  Age: 44 Year

DRUGS (5)
  1. POSACONAZOLE [Suspect]
     Active Substance: POSACONAZOLE
     Indication: Product use in unapproved indication
     Dosage: 800 MG/DAY FOR 2 MONTHS
     Route: 048
  2. ITRACONAZOLE [Concomitant]
     Active Substance: ITRACONAZOLE
     Indication: Phaeohyphomycosis
     Dosage: (800 MG/DAY) FOR ONE WEEK
     Route: 042
  3. VORICONAZOLE [Concomitant]
     Active Substance: VORICONAZOLE
     Indication: Phaeohyphomycosis
     Dosage: INTRAVENOUS VORICONAZOLE (800 MG/DAY)
     Route: 042
  4. TERBINAFINE [Concomitant]
     Active Substance: TERBINAFINE
     Indication: Phaeohyphomycosis
     Dosage: (500 MG/DAY) WERE ADMINISTERED
     Route: 065
  5. ITRACONAZOLE [Concomitant]
     Active Substance: ITRACONAZOLE
     Indication: Phaeohyphomycosis
     Dosage: (400 MG/DAY)
     Route: 048

REACTIONS (4)
  - Death [Fatal]
  - Off label use [Unknown]
  - Overdose [Unknown]
  - Therapeutic response unexpected [Unknown]
